FAERS Safety Report 4602616-6 (Version None)
Quarter: 2005Q1

REPORT INFORMATION
  Report Type: 
  Country: None (occurrence: None)
  Receive Date: 20050307
  Receipt Date: 20050221
  Transmission Date: 20050727
  Serious: Yes (Hospitalization, Other)
  Sender: FDA-Public Use
  Company Number: 201181

PATIENT
  Sex: Female

DRUGS (2)
  1. AVONEX [Suspect]
     Indication: MULTIPLE SCLEROSIS
     Dosage: 30 UG;QW;IM
     Route: 030
     Dates: start: 19980101
  2. AVONEX [Suspect]
     Indication: MULTIPLE SCLEROSIS
     Dosage: 30 UG:QW;IM
     Route: 030
     Dates: end: 20040101

REACTIONS (5)
  - ASTHENIA [None]
  - HEADACHE [None]
  - LOSS OF CONSCIOUSNESS [None]
  - MONOPLEGIA [None]
  - ROTATOR CUFF SYNDROME [None]
